FAERS Safety Report 23697809 (Version 1)
Quarter: 2024Q2

REPORT INFORMATION
  Report Type: Spontaneous
  Country: CA (occurrence: None)
  Receive Date: 20240402
  Receipt Date: 20240402
  Transmission Date: 20240716
  Serious: Yes (Other)
  Sender: FDA-Public Use
  Company Number: 2024A072681

PATIENT
  Age: 34 Year
  Sex: Female

DRUGS (4)
  1. BUDESONIDE [Suspect]
     Active Substance: BUDESONIDE
     Indication: Product used for unknown indication
  2. AZATHIOPRINE [Suspect]
     Active Substance: AZATHIOPRINE
     Indication: Product used for unknown indication
  3. HYRIMOZ [Suspect]
     Active Substance: ADALIMUMAB-ADAZ
     Indication: Product used for unknown indication
  4. MESALAMINE [Suspect]
     Active Substance: MESALAMINE
     Indication: Product used for unknown indication

REACTIONS (3)
  - Endometriosis [Unknown]
  - Terminal ileitis [Unknown]
  - Therapeutic product effect incomplete [Unknown]
